FAERS Safety Report 7411353-4 (Version None)
Quarter: 2011Q2

REPORT INFORMATION
  Report Type: 
  Country: None (occurrence: None)
  Receive Date: 20110405
  Receipt Date: 20110202
  Transmission Date: 20111010
  Serious: Yes (Hospitalization)
  Sender: FDA-Public Use
  Company Number: TR-2C11-02-001541

PATIENT
  Age: 33 Year
  Sex: Female

DRUGS (2)
  1. DOXYCYCLINE [Suspect]
     Indication: VAGINAL INFECTION
     Dosage: ORAL
     Route: 048
  2. ORNIDAZOLE (ORNIDAZOLE) LOT# UNK 500 MG [Suspect]
     Indication: VAGINAL INFECTION
     Dosage: 1000 MG ORAL
     Route: 048

REACTIONS (1)
  - PANCREATITIS ACUTE [None]
